FAERS Safety Report 6172787-1 (Version None)
Quarter: 2009Q2

REPORT INFORMATION
  Report Type: 
  Country: None (occurrence: None)
  Receive Date: 20090430
  Receipt Date: 20090427
  Transmission Date: 20091009
  Serious: Yes (Hospitalization)
  Sender: FDA-Public Use
  Company Number: JP-BRISTOL-MYERS SQUIBB COMPANY-14598510

PATIENT
  Age: 6 Decade
  Sex: Male

DRUGS (1)
  1. HYDREA [Suspect]
     Indication: ESSENTIAL THROMBOCYTHAEMIA
     Route: 048

REACTIONS (1)
  - OESOPHAGEAL ULCER [None]
